FAERS Safety Report 8548549-4 (Version None)
Quarter: 2012Q3

REPORT INFORMATION
  Report Type: 
  Country: None (occurrence: None)
  Receive Date: 20120720
  Receipt Date: 20120720
  Transmission Date: 20120928
  Serious: Yes (Hospitalization)
  Sender: FDA-Public Use
  Company Number: None

PATIENT
  Age: 51 Year
  Sex: Female
  Weight: 81.6475 kg

DRUGS (2)
  1. ZONISAMIDE [Suspect]
     Indication: WEIGHT CONTROL
     Dosage: 1 CAPSULE TWICE PER DAY
     Dates: start: 20110728, end: 20120228
  2. PHENTERMINE [Suspect]
     Indication: WEIGHT CONTROL
     Dosage: 1/2 TABLET TWICE PER-DAY PO
     Route: 048
     Dates: start: 20110728, end: 20120228

REACTIONS (4)
  - NECK PAIN [None]
  - MUSCULOSKELETAL PAIN [None]
  - PERICARDITIS [None]
  - PALPITATIONS [None]
